FAERS Safety Report 6345539-7 (Version None)
Quarter: 2009Q3

REPORT INFORMATION
  Report Type: 
  Country: None (occurrence: None)
  Receive Date: 20090909
  Receipt Date: 20090828
  Transmission Date: 20100115
  Serious: Yes (Other)
  Sender: FDA-Public Use
  Company Number: JP-PFIZER INC-2009260954

PATIENT
  Age: 71 Year

DRUGS (2)
  1. SULPERAZON [Suspect]
     Indication: PYREXIA
     Route: 042
  2. ALL OTHER THERAPEUTIC PRODUCTS [Concomitant]

REACTIONS (1)
  - SWOLLEN TONGUE [None]
